FAERS Safety Report 4493540-0 (Version None)
Quarter: 2004Q4

REPORT INFORMATION
  Report Type: 
  Country: None (occurrence: None)
  Receive Date: 20041102
  Receipt Date: 20041102
  Transmission Date: 20050328
  Serious: Yes (Hospitalization)
  Sender: FDA-Public Use
  Company Number: None

PATIENT
  Age: 48 Year
  Sex: Female

DRUGS (10)
  1. SIROLIMUS [Suspect]
     Indication: IMMUNOSUPPRESSION
     Dosage: 4 MG    DAILY     ORAL
     Route: 048
  2. TACROLIMUS [Concomitant]
  3. METOCLOPRAMIDE [Concomitant]
  4. FUROSEMIDE [Concomitant]
  5. CLONIDINE HCL [Concomitant]
  6. PREDNISONE [Concomitant]
  7. HUMULIN 70/30 [Concomitant]
  8. ASPIRIN [Concomitant]
  9. TUMS [Concomitant]
  10. ATORVASTATIN CALCIUM [Concomitant]

REACTIONS (2)
  - KIDNEY TRANSPLANT REJECTION [None]
  - URINARY TRACT INFECTION [None]
